FAERS Safety Report 18687879 (Version 4)
Quarter: 2021Q2

REPORT INFORMATION
  Report Type: Report from Study
  Country: FR (occurrence: FR)
  Receive Date: 20201231
  Receipt Date: 20210504
  Transmission Date: 20210717
  Serious: Yes (Hospitalization, Other)
  Sender: FDA-Public Use
  Company Number: NVSC2020FR173730

PATIENT
  Age: 69 Year
  Sex: Male
  Weight: 74 kg

DRUGS (31)
  1. ADOPORT [Suspect]
     Active Substance: TACROLIMUS
     Indication: RENAL TRANSPLANT
     Dosage: 10 MG
     Route: 048
     Dates: start: 20200524
  2. ADOPORT [Suspect]
     Active Substance: TACROLIMUS
     Dosage: 9 MG
     Route: 048
     Dates: start: 20200526, end: 20200527
  3. ADOPORT [Suspect]
     Active Substance: TACROLIMUS
     Dosage: 5 MG
     Route: 048
     Dates: start: 20201022, end: 20201123
  4. VALGANCICLOVIR. [Concomitant]
     Active Substance: VALGANCICLOVIR
     Indication: PRODUCT USED FOR UNKNOWN INDICATION
     Dosage: UNK
     Route: 065
     Dates: start: 20200524
  5. ADOPORT [Suspect]
     Active Substance: TACROLIMUS
     Dosage: 4 MG
     Route: 048
     Dates: start: 20201006, end: 20201022
  6. ADOPORT [Suspect]
     Active Substance: TACROLIMUS
     Dosage: 9 MG
     Route: 048
     Dates: start: 20200603, end: 20200625
  7. ADOPORT [Suspect]
     Active Substance: TACROLIMUS
     Dosage: 8 MG
     Route: 048
     Dates: start: 20200625, end: 20200703
  8. ADOPORT [Suspect]
     Active Substance: TACROLIMUS
     Dosage: 2 MG
     Route: 048
     Dates: start: 20201203, end: 20210420
  9. ADOPORT [Suspect]
     Active Substance: TACROLIMUS
     Dosage: 5 MG
     Route: 048
     Dates: start: 20200524
  10. ADOPORT [Suspect]
     Active Substance: TACROLIMUS
     Dosage: 10 MG
     Route: 048
     Dates: start: 20200524, end: 20200526
  11. ADOPORT [Suspect]
     Active Substance: TACROLIMUS
     Dosage: 3 MG
     Route: 048
     Dates: start: 20201123, end: 20201203
  12. ADOPORT [Suspect]
     Active Substance: TACROLIMUS
     Dosage: 4 MG
     Route: 048
     Dates: start: 20210420
  13. MYFORTIC [Suspect]
     Active Substance: MYCOPHENOLATE SODIUM
     Indication: PRODUCT USED FOR UNKNOWN INDICATION
     Dosage: UNK
     Route: 065
     Dates: start: 20200524
  14. MYFORTIC [Suspect]
     Active Substance: MYCOPHENOLATE SODIUM
     Dosage: UNK
     Route: 065
     Dates: start: 20201124
  15. LASILIX [Concomitant]
     Active Substance: FUROSEMIDE
     Indication: PRODUCT USED FOR UNKNOWN INDICATION
     Dosage: UNK
     Route: 065
     Dates: start: 20200529
  16. BACTRIM [Concomitant]
     Active Substance: SULFAMETHOXAZOLE\TRIMETHOPRIM
     Indication: PRODUCT USED FOR UNKNOWN INDICATION
     Dosage: UNK
     Route: 065
     Dates: start: 20200529
  17. ADOPORT [Suspect]
     Active Substance: TACROLIMUS
     Dosage: 8 MG
     Route: 048
     Dates: start: 20200524
  18. ADOPORT [Suspect]
     Active Substance: TACROLIMUS
     Dosage: 11 MG
     Route: 048
     Dates: start: 20200703, end: 20200725
  19. ADOPORT [Suspect]
     Active Substance: TACROLIMUS
     Dosage: 8 MG
     Route: 048
     Dates: start: 20200806, end: 20200904
  20. ADOPORT [Suspect]
     Active Substance: TACROLIMUS
     Dosage: 2 MG
     Route: 065
     Dates: start: 20200524
  21. ADOPORT [Suspect]
     Active Substance: TACROLIMUS
     Dosage: 9 MG
     Route: 048
     Dates: start: 20200524
  22. ADOPORT [Suspect]
     Active Substance: TACROLIMUS
     Dosage: 8 MG
     Route: 048
     Dates: start: 20200527, end: 20200602
  23. ARANESP [Concomitant]
     Active Substance: DARBEPOETIN ALFA
     Indication: PRODUCT USED FOR UNKNOWN INDICATION
     Dosage: UNK
     Route: 065
     Dates: start: 20200525
  24. ADOPORT [Suspect]
     Active Substance: TACROLIMUS
     Dosage: 11 MG
     Route: 048
     Dates: start: 20200524
  25. ADOPORT [Suspect]
     Active Substance: TACROLIMUS
     Dosage: 9 MG
     Route: 048
     Dates: start: 20200725, end: 20200806
  26. ADOPORT [Suspect]
     Active Substance: TACROLIMUS
     Dosage: 3 MG
     Route: 048
     Dates: start: 20200904, end: 20201006
  27. ADOPORT [Suspect]
     Active Substance: TACROLIMUS
     Dosage: 4 MG
     Route: 048
     Dates: start: 20200524
  28. ADOPORT [Suspect]
     Active Substance: TACROLIMUS
     Dosage: 8.5 MG
     Route: 048
     Dates: start: 20200602, end: 20200603
  29. INSULIN [Concomitant]
     Active Substance: INSULIN NOS
     Indication: PRODUCT USED FOR UNKNOWN INDICATION
     Dosage: UNK
     Route: 065
     Dates: start: 20200529, end: 20200611
  30. AMIODARONE [Concomitant]
     Active Substance: AMIODARONE
     Indication: PRODUCT USED FOR UNKNOWN INDICATION
     Dosage: UNK
     Route: 065
     Dates: start: 20200525
  31. COUMADINE [Concomitant]
     Active Substance: WARFARIN SODIUM
     Indication: PRODUCT USED FOR UNKNOWN INDICATION
     Dosage: UNK
     Route: 065
     Dates: start: 20200602

REACTIONS (21)
  - Oedema peripheral [Recovered/Resolved]
  - Cytomegalovirus infection [Recovered/Resolved]
  - Anaemia [Recovered/Resolved]
  - Cardiorenal syndrome [Recovered/Resolved]
  - Aplastic anaemia [Recovered/Resolved]
  - Blood glucose fluctuation [Recovered/Resolved]
  - Dyspepsia [Recovered/Resolved]
  - Renal impairment [Not Recovered/Not Resolved]
  - Vascular injury [Unknown]
  - Vitamin D deficiency [Not Recovered/Not Resolved]
  - Fungal infection [Not Recovered/Not Resolved]
  - Metabolic acidosis [Recovered/Resolved]
  - Metabolic acidosis [Recovering/Resolving]
  - Acute kidney injury [Recovered/Resolved]
  - Chest pain [Recovered/Resolved]
  - Neutropenia [Not Recovered/Not Resolved]
  - Leukopenia [Not Recovered/Not Resolved]
  - Tremor [Recovered/Resolved]
  - Diarrhoea [Recovered/Resolved]
  - Hypotension [Recovered/Resolved]
  - Folate deficiency [Not Recovered/Not Resolved]

NARRATIVE: CASE EVENT DATE: 20200525
